FAERS Safety Report 12535238 (Version 1)
Quarter: 2016Q3

REPORT INFORMATION
  Report Type: Spontaneous
  Country: US (occurrence: None)
  Receive Date: 20160706
  Receipt Date: 20160706
  Transmission Date: 20161109
  Serious: Yes (Hospitalization)
  Sender: FDA-Public Use
  Company Number: None

PATIENT
  Age: 18 Year
  Sex: Female

DRUGS (2)
  1. TACROLIMUS. [Suspect]
     Active Substance: TACROLIMUS
     Indication: RENAL TRANSPLANT
     Dosage: 1 CAP BID BID PO
     Route: 048
     Dates: start: 20140305, end: 20160523
  2. TACROLIMUS. [Suspect]
     Active Substance: TACROLIMUS
     Indication: RENAL TRANSPLANT
     Dosage: 2CAPS QAM + 1 CAP QPM BID PO
     Route: 048
     Dates: start: 20140115, end: 20160523

REACTIONS (1)
  - Infection [None]

NARRATIVE: CASE EVENT DATE: 20160615
